FAERS Safety Report 5869058-7 (Version None)
Quarter: 2008Q3

REPORT INFORMATION
  Report Type: 
  Country: None (occurrence: None)
  Receive Date: 20080903
  Receipt Date: 20080826
  Transmission Date: 20090109
  Serious: Yes (Congenital Anomaly)
  Sender: FDA-Public Use
  Company Number: B0534452A

PATIENT
  Sex: Male

DRUGS (2)
  1. LAMICTAL [Suspect]
     Indication: EPILEPSY
     Dosage: 150MG PER DAY
  2. FOLIC ACID [Concomitant]
     Indication: DRUG EXPOSURE DURING PREGNANCY

REACTIONS (3)
  - DRUG EXPOSURE DURING PREGNANCY [None]
  - FALLOT'S TETRALOGY [None]
  - MATERNAL DRUGS AFFECTING FOETUS [None]
